FAERS Safety Report 17029924 (Version 1)
Quarter: 2019Q4

REPORT INFORMATION
  Report Type: Report from Study
  Country: US (occurrence: US)
  Receive Date: 20191114
  Receipt Date: 20191114
  Transmission Date: 20200122
  Serious: No
  Sender: FDA-Public Use
  Company Number: US-BEH-2019109352

PATIENT
  Age: 67 Year
  Sex: Male
  Weight: 117.91 kg

DRUGS (1)
  1. SET, I.V. FLUID TRANSFER/ NEEDLE, HYPODERMIC, SINGLE LUMEN [Suspect]
     Active Substance: .ALPHA.1-PROTEINASE INHIBITOR HUMAN
     Indication: ALPHA-1 ANTI-TRYPSIN DEFICIENCY
     Dosage: 60.0, QW
     Route: 042

REACTIONS (5)
  - Back pain [Unknown]
  - Dyspnoea [Unknown]
  - Renal pain [Unknown]
  - Muscle strain [Unknown]
  - Cough [Unknown]

NARRATIVE: CASE EVENT DATE: 20191111
